FAERS Safety Report 4549870-7 (Version None)
Quarter: 2004Q4

REPORT INFORMATION
  Report Type: 
  Country: None (occurrence: None)
  Receive Date: 20041227
  Receipt Date: 20041005
  Transmission Date: 20050328
  Serious: No
  Sender: FDA-Public Use
  Company Number: 04P-163-0276157-00

PATIENT
  Sex: Female
  Weight: 74.8435 kg

DRUGS (14)
  1. HUMIRA [Suspect]
     Indication: RHEUMATOID ARTHRITIS
     Dosage: 40 MG, 1 IN 2 WK, PER ORAL
     Route: 048
     Dates: start: 20040714
  2. METOPROLOL [Concomitant]
  3. LISINOPRIL [Concomitant]
  4. ATORVASTATIN [Concomitant]
  5. PREDNISONE [Concomitant]
  6. FLUOXETINE [Concomitant]
  7. OMEPRAZOLE [Concomitant]
  8. ALPRAZOLAM [Concomitant]
  9. TOLTERODINE TARTRATE [Concomitant]
  10. CALCIUM CARBONATE [Concomitant]
  11. ACETYLSALICYLIC ACID SRT [Concomitant]
  12. MULTIVITAMIN [Concomitant]
  13. MYLANTA [Concomitant]
  14. HYDROCODONE [Concomitant]

REACTIONS (1)
  - URINARY TRACT INFECTION [None]
